FAERS Safety Report 6615395-8 (Version None)
Quarter: 2010Q1

REPORT INFORMATION
  Report Type: 
  Country: None (occurrence: None)
  Receive Date: 20100305
  Receipt Date: 20091019
  Transmission Date: 20100710
  Serious: No
  Sender: FDA-Public Use
  Company Number: A0812402A

PATIENT
  Age: 71 Year
  Sex: Female

DRUGS (2)
  1. ROPINIROLE [Suspect]
     Indication: PARKINSON'S DISEASE
     Route: 048
     Dates: start: 20090101
  2. UNSPECIFIED PATCH [Concomitant]

REACTIONS (2)
  - NAUSEA [None]
  - VOMITING [None]
